FAERS Safety Report 9403674 (Version 2)
Quarter: 2013Q3

REPORT INFORMATION
  Report Type: Spontaneous
  Country: US (occurrence: US)
  Receive Date: 20130717
  Receipt Date: 20130731
  Transmission Date: 20140515
  Serious: No
  Sender: FDA-Public Use
  Company Number: US-009507513-1307USA001102

PATIENT
  Age: 52 Year
  Sex: Female

DRUGS (5)
  1. VICTRELIS [Suspect]
     Indication: HEPATITIS C
     Dosage: UNK
     Route: 048
  2. VICTRELIS [Suspect]
     Dosage: 3200 MG, QD
     Route: 048
     Dates: start: 20130630, end: 20130630
  3. VICTRELIS [Suspect]
     Dosage: UNK
     Dates: start: 20130701
  4. REBETOL [Suspect]
     Indication: HEPATITIS C
     Dosage: UNK
     Route: 048
  5. PEGINTRON [Suspect]
     Indication: HEPATITIS C
     Dosage: UNK

REACTIONS (1)
  - Overdose [Unknown]
